FAERS Safety Report 4627474-5 (Version None)
Quarter: 2005Q1

REPORT INFORMATION
  Report Type: 
  Country: None (occurrence: None)
  Receive Date: 20050330
  Receipt Date: 20050317
  Transmission Date: 20050727
  Serious: Yes (Other)
  Sender: FDA-Public Use
  Company Number: 2005046943

PATIENT
  Sex: Male

DRUGS (1)
  1. DIFLUCAN [Suspect]
     Indication: FUNGAL INFECTION
     Dosage: UNKNOWN
     Route: 065

REACTIONS (3)
  - ACOUSTIC NEUROMA [None]
  - CRANIAL NERVE DISORDER [None]
  - THERAPEUTIC RESPONSE UNEXPECTED [None]
